FAERS Safety Report 7605717-3 (Version None)
Quarter: 2011Q3

REPORT INFORMATION
  Report Type: 
  Country: None (occurrence: None)
  Receive Date: 20110713
  Receipt Date: 20110707
  Transmission Date: 20111222
  Serious: Yes (Other)
  Sender: FDA-Public Use
  Company Number: US-PFIZER INC-2011153553

PATIENT
  Sex: Male
  Weight: 59.41 kg

DRUGS (6)
  1. SERTRALINE [Concomitant]
     Indication: DEPRESSION
     Dosage: 100 MG, 1X/DAY
     Route: 048
  2. ACETAMINOPHEN AND HYDROCODONE BITARTRATE [Concomitant]
     Indication: PAIN
     Dosage: 10/325 MG
     Route: 048
  3. METFORMIN [Concomitant]
     Indication: TYPE 2 DIABETES MELLITUS
     Dosage: 1000 MG, 1X/DAY
     Route: 048
  4. METOCLOPRAMIDE [Concomitant]
     Indication: NAUSEA
     Dosage: 10 MG, EVERY 6 HOURS
     Route: 048
  5. SUTENT [Suspect]
     Dosage: 37.5 MG, DAILY
     Route: 048
     Dates: start: 20110701
  6. PLAVIX [Concomitant]
     Indication: CARDIOVASCULAR DISORDER
     Dosage: 160 MG, 1X/DAY
     Route: 048

REACTIONS (1)
  - HAEMATEMESIS [None]
